FAERS Safety Report 11644610 (Version 1)
Quarter: 2015Q4

REPORT INFORMATION
  Report Type: Spontaneous
  Country: CA (occurrence: CA)
  Receive Date: 20151020
  Receipt Date: 20151020
  Transmission Date: 20160304
  Serious: Yes (Other)
  Sender: FDA-Public Use
  Company Number: CA-JNJFOC-20151011457

PATIENT
  Age: 9 Year
  Sex: Male
  Weight: 29 kg

DRUGS (1)
  1. CONCERTA [Suspect]
     Active Substance: METHYLPHENIDATE HYDROCHLORIDE
     Indication: ATTENTION DEFICIT/HYPERACTIVITY DISORDER
     Dosage: FREQUENCY: ONCE
     Route: 048

REACTIONS (7)
  - Tardive dyskinesia [Recovered/Resolved]
  - Tic [Recovered/Resolved]
  - Insomnia [Recovered/Resolved]
  - Restlessness [Recovered/Resolved]
  - Rash [Recovered/Resolved]
  - Lip blister [Recovered/Resolved]
  - Vision blurred [Recovered/Resolved]
